FAERS Safety Report 9726023 (Version 1)
Quarter: 2013Q4

REPORT INFORMATION
  Report Type: Spontaneous
  Country: US (occurrence: None)
  Receive Date: 20131202
  Receipt Date: 20131202
  Transmission Date: 20140711
  Serious: Yes (Hospitalization)
  Sender: FDA-Public Use
  Company Number: None

PATIENT
  Age: 67 Year
  Sex: Male
  Weight: 83.5 kg

DRUGS (2)
  1. CARBOPLATIN [Suspect]
     Indication: METASTASES TO LUNG
     Route: 042
     Dates: start: 20130816
  2. CARBOPLATIN [Suspect]
     Indication: HEAD AND NECK CANCER
     Route: 042
     Dates: start: 20130816

REACTIONS (4)
  - Nausea [None]
  - Vomiting [None]
  - Investigation [None]
  - Haematemesis [None]
